FAERS Safety Report 4456843-1 (Version None)
Quarter: 2004Q3

REPORT INFORMATION
  Report Type: 
  Country: None (occurrence: None)
  Receive Date: 20040921
  Receipt Date: 20040913
  Transmission Date: 20050211
  Serious: Yes (Death, Hospitalization)
  Sender: FDA-Public Use
  Company Number: US-JNJFOC-20040903533

PATIENT
  Age: 38 Year
  Sex: Female

DRUGS (1)
  1. ACETAMINOPHEN [Suspect]
     Indication: SUICIDE ATTEMPT
     Dosage: LARGE AMOUNT

REACTIONS (5)
  - CARDIAC ARREST [None]
  - DRUG SCREEN POSITIVE [None]
  - HEPATIC NECROSIS [None]
  - HEPATITIS FULMINANT [None]
  - THERAPEUTIC AGENT TOXICITY [None]
